FAERS Safety Report 5640796-4 (Version None)
Quarter: 2008Q1

REPORT INFORMATION
  Report Type: 
  Country: None (occurrence: None)
  Receive Date: 20080226
  Receipt Date: 20080207
  Transmission Date: 20080703
  Serious: Yes (Other)
  Sender: FDA-Public Use
  Company Number: B0509191A

PATIENT
  Age: 60 Year
  Sex: Male

DRUGS (3)
  1. COREG [Suspect]
     Dosage: ORAL
     Route: 048
  2. LISINOPRIL [Suspect]
  3. AGGRENOX [Suspect]

REACTIONS (1)
  - CEREBROVASCULAR ACCIDENT [None]
